FAERS Safety Report 5930722-2 (Version None)
Quarter: 2008Q4

REPORT INFORMATION
  Report Type: 
  Country: None (occurrence: None)
  Receive Date: 20081009
  Receipt Date: 20080116
  Transmission Date: 20090506
  Serious: Yes (Other)
  Sender: FDA-Public Use
  Company Number: 18222

PATIENT
  Age: 53 Year
  Sex: Male

DRUGS (9)
  1. METHOTREXATE [Suspect]
     Indication: LYMPHOMA
  2. CYCLOPHOSPHAMIDE [Concomitant]
  3. MESNA [Concomitant]
  4. VINCRISTINE [Concomitant]
  5. DEXAMETHASONE [Concomitant]
  6. CYTARABINE [Concomitant]
  7. LEUCOVORIN CALCIUM [Concomitant]
  8. SODIUM BICARBONATE [Concomitant]
  9. DOXORUBICIN HCL [Concomitant]

REACTIONS (1)
  - RENAL FAILURE ACUTE [None]
